FAERS Safety Report 8760075 (Version 1)
Quarter: 2012Q4

REPORT INFORMATION
  Report Type: Report from Study
  Country: CA (occurrence: CA)
  Receive Date: 20120829
  Receipt Date: 20120829
  Transmission Date: 20130627
  Serious: Yes (Other)
  Sender: FDA-Public Use
  Company Number: CA-ABBOTT-12P-028-0968342-00

PATIENT
  Sex: Female

DRUGS (2)
  1. HUMIRA 40 MG/ 0.8 ML PRE-FILLED SYRINGE [Suspect]
     Indication: CROHN^S DISEASE
     Dosage: Unspecified
     Route: 058
     Dates: start: 20071019, end: 201112
  2. METHOTREXATE [Concomitant]
     Indication: PRODUCT USED FOR UNKNOWN INDICATION
     Dosage: weekly

REACTIONS (5)
  - Blood creatinine increased [Unknown]
  - Anaemia [Unknown]
  - Renal failure acute [Unknown]
  - Plasma cell myeloma [Recovering/Resolving]
  - Dehydration [Unknown]
